FAERS Safety Report 10154151 (Version 1)
Quarter: 2014Q2

REPORT INFORMATION
  Report Type: Report from Study
  Country: AT (occurrence: AT)
  Receive Date: 20140506
  Receipt Date: 20140506
  Transmission Date: 20141212
  Serious: Yes (Hospitalization)
  Sender: FDA-Public Use
  Company Number: AT-CELGENEUS-009-21660-14044469

PATIENT
  Age: 47 Year
  Sex: Female
  Weight: 79 kg

DRUGS (4)
  1. ABRAXANE [Suspect]
     Indication: BREAST CANCER METASTATIC
     Dosage: 363.2 MILLIGRAM/SQ. METER
     Route: 065
     Dates: end: 201205
  2. CAPECITABINE [Concomitant]
     Indication: BREAST CANCER METASTATIC
     Route: 065
  3. DOXORUBICINE [Concomitant]
     Indication: BREAST CANCER METASTATIC
     Route: 065
  4. PANTOLOC [Concomitant]
     Indication: PRODUCT USED FOR UNKNOWN INDICATION
     Route: 041

REACTIONS (2)
  - Pathological fracture [Not Recovered/Not Resolved]
  - Mucosal inflammation [Not Recovered/Not Resolved]
